FAERS Safety Report 5648435-3 (Version None)
Quarter: 2008Q1

REPORT INFORMATION
  Report Type: 
  Country: None (occurrence: None)
  Receive Date: 20080131
  Receipt Date: 20071202
  Transmission Date: 20080703
  Serious: No
  Sender: FDA-Public Use
  Company Number: US200708000261

PATIENT
  Sex: Male

DRUGS (9)
  1. BYETTA [Suspect]
     Indication: INSULIN-REQUIRING TYPE 2 DIABETES MELLITUS
     Dosage: 5 UG 2/D SUBCUTANEOUS; 10 UG 2/D SUBCUTANEOUS; 5 UG 2/D SUBCUTANEOUS
     Route: 058
     Dates: start: 20050101, end: 20050101
  2. BYETTA [Suspect]
     Indication: INSULIN-REQUIRING TYPE 2 DIABETES MELLITUS
     Dosage: 5 UG 2/D SUBCUTANEOUS; 10 UG 2/D SUBCUTANEOUS; 5 UG 2/D SUBCUTANEOUS
     Route: 058
     Dates: start: 20050101, end: 20050101
  3. BYETTA [Suspect]
     Indication: INSULIN-REQUIRING TYPE 2 DIABETES MELLITUS
     Dosage: 5 UG 2/D SUBCUTANEOUS; 10 UG 2/D SUBCUTANEOUS; 5 UG 2/D SUBCUTANEOUS
     Route: 058
     Dates: start: 20070101, end: 20070101
  4. EXENATIDE 5MCG PEN, DISPOSABLE DEVICE [Concomitant]
  5. EXENATIDE 10 MCG PEN, DISPOSABLE DEVICE (EXENATIDE PEN (10 MCG)) PEN, [Concomitant]
  6. ................. [Concomitant]
  7. INSULIN (INSULIN) [Concomitant]
  8. METFORMIN HCL [Concomitant]
  9. DRUG USED IN DIABETES [Concomitant]

REACTIONS (2)
  - MALAISE [None]
  - NAUSEA [None]
